FAERS Safety Report 6056311-X (Version None)
Quarter: 2009Q1

REPORT INFORMATION
  Report Type: 
  Country: None (occurrence: None)
  Receive Date: 20090129
  Receipt Date: 20090121
  Transmission Date: 20090719
  Serious: No
  Sender: FDA-Public Use
  Company Number: US-BAYER-200911475NA

PATIENT
  Sex: Female

DRUGS (1)
  1. AVELOX [Suspect]
     Indication: DRUG USE FOR UNKNOWN INDICATION
     Dosage: UNIT DOSE: 400 MG

REACTIONS (5)
  - EYE SWELLING [None]
  - HYPERSENSITIVITY [None]
  - LIP SWELLING [None]
  - RASH [None]
  - THROAT TIGHTNESS [None]
